FAERS Safety Report 15664460 (Version 7)
Quarter: 2020Q1

REPORT INFORMATION
  Report Type: Spontaneous
  Country: BR (occurrence: BR)
  Receive Date: 20181128
  Receipt Date: 20200203
  Transmission Date: 20200409
  Serious: Yes (Hospitalization)
  Sender: FDA-Public Use
  Company Number: BR-GLAXOSMITHKLINE-BR2016GSK001620

PATIENT
  Age: 27 Year
  Sex: Female
  Weight: 60 kg

DRUGS (5)
  1. REUQUINOL (HYDROXYCHLOROQUINE SULFATE) [Concomitant]
     Active Substance: HYDROXYCHLOROQUINE SULFATE
     Indication: PRODUCT USED FOR UNKNOWN INDICATION
     Dosage: UNK
  2. SUNSCREEN GSK [OCTOCRYLENE\TITANIUM DIOXIDE] [Suspect]
     Active Substance: OCTOCRYLENE\TITANIUM DIOXIDE
     Indication: PROPHYLAXIS
     Dosage: UNK
  3. ALIVIUM (IBUPROFEN) [Suspect]
     Active Substance: IBUPROFEN
     Indication: PRODUCT USED FOR UNKNOWN INDICATION
     Dosage: UNK
  4. PREDNISONE. [Concomitant]
     Active Substance: PREDNISONE
     Indication: PRODUCT USED FOR UNKNOWN INDICATION
     Dosage: UNK
  5. BENLYSTA [Suspect]
     Active Substance: BELIMUMAB
     Indication: SYSTEMIC LUPUS ERYTHEMATOSUS
     Dosage: UNK(6 VIALS)
     Dates: start: 20150903

REACTIONS (12)
  - Exposure during pregnancy [Recovered/Resolved]
  - Surgery [Unknown]
  - Skin disorder [Unknown]
  - Underdose [Not Recovered/Not Resolved]
  - Inappropriate schedule of product administration [Recovered/Resolved]
  - Product dose omission [Unknown]
  - Premature baby [Unknown]
  - Heart rate increased [Recovered/Resolved]
  - Pharyngitis [Unknown]
  - Weight decreased [Unknown]
  - Live birth [Unknown]
  - Circumstance or information capable of leading to medication error [Not Recovered/Not Resolved]

NARRATIVE: CASE EVENT DATE: 20181114
